FAERS Safety Report 9173275 (Version 1)
Quarter: 2013Q1

REPORT INFORMATION
  Report Type: Spontaneous
  Country: PT (occurrence: None)
  Receive Date: 20130313
  Receipt Date: 20130313
  Transmission Date: 20140127
  Serious: No
  Sender: FDA-Public Use
  Company Number: AEPRT201200379

PATIENT
  Sex: 0

DRUGS (1)
  1. PROLASTIN [Suspect]
     Indication: ALPHA-1 ANTI-TRYPSIN DEFICIENCY
     Dosage: IV
     Route: 042
     Dates: start: 20120710, end: 20120710

REACTIONS (3)
  - Drug administration error [None]
  - Product container seal issue [None]
  - Inadequate aseptic technique in use of product [None]
